FAERS Safety Report 11873028 (Version 1)
Quarter: 2015Q4

REPORT INFORMATION
  Report Type: Spontaneous
  Country: KR (occurrence: KR)
  Receive Date: 20151228
  Receipt Date: 20151228
  Transmission Date: 20160305
  Serious: Yes (Death, Other)
  Sender: FDA-Public Use
  Company Number: KR-CELGENE-KOR-2015103518

PATIENT
  Age: 49 Year
  Sex: Male

DRUGS (4)
  1. THALIDOMIDE [Suspect]
     Active Substance: THALIDOMIDE
     Indication: MYELOID METAPLASIA
     Route: 048
  2. PREDNISONE. [Concomitant]
     Active Substance: PREDNISONE
     Indication: MYELOID METAPLASIA
     Route: 065
  3. DANAZOLE [Concomitant]
     Indication: MYELOID METAPLASIA
     Route: 065
  4. HYDROXYUREA. [Concomitant]
     Active Substance: HYDROXYUREA
     Indication: POLYCYTHAEMIA VERA
     Route: 065

REACTIONS (6)
  - Abdominal sepsis [Unknown]
  - Death [Fatal]
  - General physical health deterioration [Unknown]
  - Azotaemia [Unknown]
  - Febrile neutropenia [Unknown]
  - Stomatitis [Unknown]
